FAERS Safety Report 9240579 (Version 1)
Quarter: 2013Q2

REPORT INFORMATION
  Report Type: Spontaneous
  Country: US (occurrence: US)
  Receive Date: 20130418
  Receipt Date: 20130418
  Transmission Date: 20140414
  Serious: No
  Sender: FDA-Public Use
  Company Number: US-SANOFI-AVENTIS-2012SA069303

PATIENT
  Age: 89 Year
  Sex: Male

DRUGS (3)
  1. ENOXAPARIN SODIUM - WINTHROP [Suspect]
     Indication: PROPHYLAXIS
     Route: 065
     Dates: start: 20120909
  2. WARFARIN [Suspect]
     Route: 065
  3. WARFARIN [Suspect]
     Route: 065
     Dates: start: 20120914

REACTIONS (2)
  - Fatigue [Unknown]
  - International normalised ratio decreased [Unknown]
